FAERS Safety Report 23886255 (Version 3)
Quarter: 2024Q3

REPORT INFORMATION
  Report Type: Spontaneous
  Country: FR (occurrence: FR)
  Receive Date: 20240522
  Receipt Date: 20240722
  Transmission Date: 20241017
  Serious: Yes (Death, Hospitalization)
  Sender: NOVARTIS
  Company Number: FR-002147023-NVSC2024FR081823

PATIENT
  Age: 44 Year
  Sex: Female

DRUGS (3)
  1. OCTREOTIDE ACETATE [Suspect]
     Active Substance: OCTREOTIDE ACETATE
     Indication: Product used for unknown indication
     Dosage: 30 MG (ONE INJECTION  EVERY 14 DAYS)
     Route: 065
     Dates: start: 202312
  2. OCTREOTIDE ACETATE [Suspect]
     Active Substance: OCTREOTIDE ACETATE
     Dosage: UNK
     Route: 065
  3. OCTREOTIDE ACETATE [Suspect]
     Active Substance: OCTREOTIDE ACETATE
     Dosage: UNK
     Route: 065

REACTIONS (6)
  - Death [Fatal]
  - Wrong device used [Unknown]
  - Product leakage [Unknown]
  - Product use complaint [Unknown]
  - Product physical consistency issue [Unknown]
  - Off label use [Unknown]

NARRATIVE: CASE EVENT DATE: 20240408
